FAERS Safety Report 15633910 (Version 1)
Quarter: 2018Q4

REPORT INFORMATION
  Report Type: Spontaneous
  Country: FR (occurrence: FR)
  Receive Date: 20181119
  Receipt Date: 20181119
  Transmission Date: 20190205
  Serious: Yes (Hospitalization)
  Sender: FDA-Public Use
  Company Number: FR-PFIZER INC-2018467019

PATIENT
  Age: 54 Year
  Sex: Male
  Weight: 62 kg

DRUGS (6)
  1. ZYVOXID [Suspect]
     Active Substance: LINEZOLID
     Indication: LUNG DISORDER
     Dosage: 1200 MG, 1X/DAY
     Route: 048
     Dates: start: 20180921, end: 20181020
  2. PANTOPRAZOLE [Concomitant]
     Active Substance: PANTOPRAZOLE
     Dosage: UNK
     Route: 048
  3. TAZOCILLINE [Suspect]
     Active Substance: PIPERACILLIN SODIUM\TAZOBACTAM SODIUM
     Indication: LUNG DISORDER
     Dosage: UNK
     Route: 041
     Dates: start: 20180921, end: 20181020
  4. EXACYL [Concomitant]
     Active Substance: TRANEXAMIC ACID
     Indication: HEREDITARY HAEMORRHAGIC TELANGIECTASIA
     Route: 048
  5. OROZAMUDOL [Concomitant]
     Active Substance: TRAMADOL
     Indication: PAIN
     Dosage: UNK
     Route: 048
  6. ULTIBRO BREEZHALER [Concomitant]
     Active Substance: GLYCOPYRRONIUM\INDACATEROL
     Indication: CHRONIC OBSTRUCTIVE PULMONARY DISEASE
     Dosage: 1 DF, 1X/DAY
     Route: 045

REACTIONS (3)
  - Epistaxis [Recovering/Resolving]
  - Product use issue [Unknown]
  - Platelet count increased [Recovered/Resolved]

NARRATIVE: CASE EVENT DATE: 20180925
